FAERS Safety Report 8137645-1 (Version None)
Quarter: 2012Q1

REPORT INFORMATION
  Report Type: 
  Country: None (occurrence: None)
  Receive Date: 20120215
  Receipt Date: 20120211
  Transmission Date: 20120608
  Serious: No
  Sender: FDA-Public Use
  Company Number: US-PFIZER INC-2012037343

PATIENT
  Sex: Female
  Weight: 49.887 kg

DRUGS (4)
  1. LYRICA [Suspect]
     Indication: HEADACHE
     Dosage: 75 MG, 2X/DAY
     Route: 048
     Dates: start: 20120119, end: 20120210
  2. CELEBREX [Suspect]
     Dosage: UNK
     Route: 048
  3. METOPROLOL [Concomitant]
     Indication: HYPERTENSION
     Dosage: 100 MG, 2X/DAY
  4. DIOVAN [Concomitant]
     Indication: HYPERTENSION
     Dosage: 320 MG, DAILY

REACTIONS (3)
  - DRUG HYPERSENSITIVITY [None]
  - SKIN HAEMORRHAGE [None]
  - PRURITUS [None]
